FAERS Safety Report 7065854-1 (Version None)
Quarter: 2010Q4

REPORT INFORMATION
  Report Type: 
  Country: None (occurrence: None)
  Receive Date: 20101027
  Receipt Date: 20101014
  Transmission Date: 20110411
  Serious: Yes (Hospitalization)
  Sender: FDA-Public Use
  Company Number: US-CELGENEUS-163-21880-10101501

PATIENT
  Sex: Male

DRUGS (3)
  1. REVLIMID [Suspect]
     Indication: MULTIPLE MYELOMA
     Route: 048
     Dates: start: 20080601
  2. REVLIMID [Suspect]
     Route: 048
     Dates: start: 20080701
  3. REVLIMID [Suspect]
     Route: 048
     Dates: start: 20080301

REACTIONS (2)
  - DIARRHOEA [None]
  - PANCREATIC CARCINOMA [None]
